FAERS Safety Report 6082999-3 (Version None)
Quarter: 2009Q1

REPORT INFORMATION
  Report Type: 
  Country: None (occurrence: None)
  Receive Date: 20090218
  Receipt Date: 20090213
  Transmission Date: 20090719
  Serious: Yes (Hospitalization)
  Sender: FDA-Public Use
  Company Number: FR-B.I. PHARMACEUTICALS,INC./RIDGEFIELD-2009-FF-00080FF

PATIENT
  Sex: Female

DRUGS (16)
  1. MOBIC [Suspect]
     Dosage: 15MG
     Route: 048
     Dates: start: 20071207, end: 20071213
  2. GLUCOPHAGE [Suspect]
     Indication: DIABETES MELLITUS
     Dosage: 3000MG
     Route: 048
     Dates: end: 20071231
  3. PREVISCAN [Suspect]
     Route: 048
  4. DI ANTALVIC [Suspect]
     Indication: PAIN
     Route: 048
     Dates: start: 20071207, end: 20071213
  5. VOLTAREN [Suspect]
     Route: 008
     Dates: start: 20071207, end: 20071213
  6. PROZAC [Concomitant]
     Indication: DEPRESSION
     Dosage: 20MG
     Route: 048
  7. LEVOTHYROX [Concomitant]
     Indication: HYPOTHYROIDISM
     Dosage: 75MCG
     Route: 048
  8. TRIATEC [Concomitant]
     Indication: CARDIAC FAILURE
     Dosage: 5MG
     Route: 048
  9. BISOPROLOL FUMARATE [Concomitant]
     Indication: CARDIAC FAILURE
     Dosage: 2.5MG
     Route: 048
  10. LASILIX [Concomitant]
     Indication: CARDIAC FAILURE
     Dosage: 40MG
     Route: 048
  11. CORDARONE [Concomitant]
     Indication: ATRIAL FIBRILLATION
     Dosage: 200 MG, 5  WEEKS
     Route: 048
  12. TAHOR [Concomitant]
     Indication: DYSLIPIDAEMIA
     Route: 048
  13. AUGMENTIN '125' [Concomitant]
     Route: 048
     Dates: start: 20071207, end: 20071213
  14. PYOSTACINE [Concomitant]
     Dosage: 1000MG
     Route: 048
     Dates: start: 20071213, end: 20071221
  15. NEXIUM [Concomitant]
     Dosage: 40MG
     Route: 048
     Dates: start: 20071218, end: 20071231
  16. PRIMPERAN [Concomitant]
     Route: 048
     Dates: start: 20071218, end: 20071231

REACTIONS (2)
  - INTERNATIONAL NORMALISED RATIO INCREASED [None]
  - RENAL FAILURE ACUTE [None]
